FAERS Safety Report 13329606 (Version 2)
Quarter: 2017Q2

REPORT INFORMATION
  Report Type: Spontaneous
  Country: FR (occurrence: FR)
  Receive Date: 20170313
  Receipt Date: 20170405
  Transmission Date: 20170830
  Serious: Yes (Hospitalization, Other)
  Sender: FDA-Public Use
  Company Number: FR-GLAXOSMITHKLINE-FR2017GSK031666

PATIENT
  Age: 32 Year
  Sex: Male

DRUGS (12)
  1. NIVESTIM [Concomitant]
     Active Substance: FILGRASTIM
     Dosage: UNK
     Dates: start: 20161119, end: 20161129
  2. GRANOCYTE [Concomitant]
     Active Substance: LENOGRASTIM
     Dosage: UNK
     Dates: start: 201609, end: 201609
  3. PLITICAN [Concomitant]
     Active Substance: ALIZAPRIDE HYDROCHLORIDE
     Dosage: UNK
     Dates: start: 20161114, end: 20161120
  4. CARBOPLATINE [Suspect]
     Active Substance: CARBOPLATIN
     Indication: TESTICULAR GERM CELL TUMOUR
     Dosage: UNK
     Route: 042
     Dates: start: 20161114, end: 20161116
  5. VANCOMYCINE [Suspect]
     Active Substance: VANCOMYCIN
     Indication: INFECTION
     Dosage: UNK
     Dates: start: 20161123, end: 20161127
  6. TAZOCILLINE [Suspect]
     Active Substance: PIPERACILLIN SODIUM\TAZOBACTAM SODIUM
     Indication: INFECTION
     Dosage: UNK
     Dates: start: 20161122, end: 20161128
  7. EMEND [Concomitant]
     Active Substance: APREPITANT
     Dosage: UNK
     Dates: start: 20161114, end: 20161116
  8. ETOPOSIDE. [Suspect]
     Active Substance: ETOPOSIDE
     Indication: TESTICULAR GERM CELL TUMOUR
     Dosage: UNK
     Route: 042
     Dates: start: 20161114, end: 20161116
  9. DOLOSAL [Suspect]
     Active Substance: MEPERIDINE HYDROCHLORIDE
     Indication: MUCOSAL INFLAMMATION
     Dosage: UNK
     Dates: start: 20161123, end: 20161127
  10. XANAX [Concomitant]
     Active Substance: ALPRAZOLAM
     Dosage: UNK
     Dates: start: 20161114, end: 20161130
  11. ZOPHREN [Concomitant]
     Active Substance: ONDANSETRON
     Dosage: UNK
     Dates: start: 20161114, end: 20161123
  12. ZELITREX [Suspect]
     Active Substance: VALACYCLOVIR HYDROCHLORIDE
     Indication: ANTIVIRAL PROPHYLAXIS
     Dosage: UNK
     Route: 048
     Dates: start: 20161113, end: 20161126

REACTIONS (2)
  - Acute kidney injury [Recovered/Resolved with Sequelae]
  - Renal tubular disorder [Recovered/Resolved with Sequelae]

NARRATIVE: CASE EVENT DATE: 20161126
